FAERS Safety Report 9879576 (Version 1)
Quarter: 2014Q1

REPORT INFORMATION
  Report Type: Spontaneous
  Country: IT (occurrence: IT)
  Receive Date: 20140206
  Receipt Date: 20140206
  Transmission Date: 20141002
  Serious: Yes (Other)
  Sender: FDA-Public Use
  Company Number: IT-ELI_LILLY_AND_COMPANY-IT201402000922

PATIENT
  Sex: Male

DRUGS (3)
  1. GEMCITABINE HYDROCHLORIDE [Suspect]
     Dosage: 800 MG/M2, OTHER
     Route: 042
  2. PACLITAXEL [Suspect]
     Dosage: 80 MG/M2, OTHER
  3. CISPLATIN [Suspect]
     Dosage: 50 MG/M2, OTHER
     Route: 042

REACTIONS (1)
  - Thoracic haemorrhage [Unknown]
